FAERS Safety Report 8607628-3 (Version None)
Quarter: 2012Q3

REPORT INFORMATION
  Report Type: 
  Country: None (occurrence: None)
  Receive Date: 20120821
  Receipt Date: 20120813
  Transmission Date: 20120928
  Serious: Yes (Other)
  Sender: FDA-Public Use
  Company Number: US-BAYER-2012-066748

PATIENT
  Age: 41 Year
  Sex: Female
  Weight: 92.971 kg

DRUGS (1)
  1. MIRENA [Suspect]
     Indication: CONTRACEPTION
     Dosage: 20 ?G/D, CONT
     Route: 015
     Dates: start: 20120529, end: 20120609

REACTIONS (2)
  - PROCEDURAL PAIN [None]
  - UTERINE PERFORATION [None]
